FAERS Safety Report 7068437-2 (Version None)
Quarter: 2010Q4

REPORT INFORMATION
  Report Type: 
  Country: None (occurrence: None)
  Receive Date: 20101028
  Receipt Date: 20101026
  Transmission Date: 20110411
  Serious: Yes (Hospitalization)
  Sender: FDA-Public Use
  Company Number: D0069058A

PATIENT
  Sex: Male

DRUGS (1)
  1. REQUIP [Suspect]
     Indication: PARKINSON'S DISEASE
     Dosage: 8MG PER DAY
     Route: 048

REACTIONS (4)
  - ACCIDENTAL OVERDOSE [None]
  - GLOMERULONEPHRITIS MINIMAL LESION [None]
  - MEDICATION ERROR [None]
  - OEDEMA [None]
